FAERS Safety Report 7251120-8 (Version None)
Quarter: 2011Q1

REPORT INFORMATION
  Report Type: 
  Country: None (occurrence: None)
  Receive Date: 20110128
  Receipt Date: 20110118
  Transmission Date: 20110831
  Serious: Yes (Other)
  Sender: FDA-Public Use
  Company Number: US-PURDUE-USA-2011-0062511

PATIENT
  Sex: Female

DRUGS (1)
  1. SENOKOT [Suspect]
     Indication: PRODUCT USED FOR UNKNOWN INDICATION
     Dosage: 4 TABLET, DAILY
     Route: 048
     Dates: start: 19860101

REACTIONS (1)
  - NEOPLASM MALIGNANT [None]
